FAERS Safety Report 6712495-9 (Version None)
Quarter: 2010Q2

REPORT INFORMATION
  Report Type: 
  Country: None (occurrence: None)
  Receive Date: 20100505
  Receipt Date: 20100505
  Transmission Date: 20101027
  Serious: Yes (Life-Threatening, Hospitalization)
  Sender: FDA-Public Use
  Company Number: None

PATIENT
  Age: 65 Month
  Sex: Female
  Weight: 56.6996 kg

DRUGS (1)
  1. EPIPEN [Suspect]
     Indication: BITE
     Dosage: 0.3 MG SINGLE DOSE IM
     Route: 030
     Dates: start: 20090910

REACTIONS (4)
  - CLOSTRIDIAL INFECTION [None]
  - MEDICATION ERROR [None]
  - PAIN IN EXTREMITY [None]
  - PRODUCT OUTER PACKAGING ISSUE [None]
